FAERS Safety Report 10254126 (Version 2)
Quarter: 2014Q2

REPORT INFORMATION
  Report Type: Spontaneous
  Country: AU (occurrence: AU)
  Receive Date: 20140623
  Receipt Date: 20140627
  Transmission Date: 20141212
  Serious: Yes (Other)
  Sender: FDA-Public Use
  Company Number: PHHY2014AU075726

PATIENT
  Age: 9 Year
  Sex: Male

DRUGS (1)
  1. TRILEPTAL [Suspect]
     Indication: CONVULSION
     Dosage: 150 MG, IN NIGHT

REACTIONS (8)
  - Paranoia [Recovered/Resolved]
  - Aggression [Unknown]
  - Mood swings [Unknown]
  - Affect lability [Unknown]
  - Balance disorder [Unknown]
  - Ataxia [Unknown]
  - Dizziness [Unknown]
  - Coordination abnormal [Unknown]
